FAERS Safety Report 4483730-5 (Version None)
Quarter: 2004Q4

REPORT INFORMATION
  Report Type: 
  Country: None (occurrence: None)
  Receive Date: 20041021
  Receipt Date: 20041012
  Transmission Date: 20050328
  Serious: Yes (Hospitalization, Other)
  Sender: FDA-Public Use
  Company Number: 2004238972US

PATIENT
  Sex: Male
  Weight: 70.3 kg

DRUGS (8)
  1. CELEBREX [Suspect]
     Indication: ARTHRITIS
     Dosage: 100 MG, BID, ORAL
     Route: 048
     Dates: start: 19990701
  2. NAPROXEN [Suspect]
     Indication: ARTHRITIS
     Dosage: 275 MG,TID , PRN, ORAL
     Route: 048
     Dates: start: 19990701
  3. PREVACID [Suspect]
     Dosage: 15 MG, QD, ORAL
     Route: 048
     Dates: start: 19990701
  4. ANESTHESIA [Suspect]
     Indication: RADICAL PROSTATECTOMY
     Dates: start: 20031001
  5. LIPITOR [Concomitant]
  6. COZAAR [Concomitant]
  7. NEURONTIN [Concomitant]
  8. BLOOD PRESSURE MEDICATION [Concomitant]

REACTIONS (5)
  - ANAESTHETIC COMPLICATION [None]
  - DRUG EFFECT DECREASED [None]
  - HICCUPS [None]
  - MALLORY-WEISS SYNDROME [None]
  - POST PROCEDURAL COMPLICATION [None]
